FAERS Safety Report 7302961-X (Version None)
Quarter: 2011Q1

REPORT INFORMATION
  Report Type: 
  Country: None (occurrence: None)
  Receive Date: 20110220
  Receipt Date: 20110127
  Transmission Date: 20110831
  Serious: No
  Sender: FDA-Public Use
  Company Number: US-BAYER-2011-010975

PATIENT
  Sex: Female

DRUGS (7)
  1. CORTICOSTEROID NOS [Concomitant]
     Dosage: UNK
     Dates: start: 20110124, end: 20110124
  2. WELCHOL [Concomitant]
     Dosage: UNK
  3. ANTIHYPERTENSIVES [Concomitant]
     Dosage: UNK
  4. GLIMEPIRIDE [Concomitant]
     Dosage: UNK
  5. ALEVE (CAPLET) [Suspect]
     Indication: ARTHRITIS
     Dosage: 4 DF, QD, BOTTLE COUNT 100CT
     Route: 048
     Dates: start: 20110124, end: 20110127
  6. FOLIC ACID [Concomitant]
     Dosage: UNK
  7. BENICAR HCT [Concomitant]
     Dosage: UNK

REACTIONS (1)
  - NO ADVERSE EVENT [None]
